FAERS Safety Report 19291494 (Version 1)
Quarter: 2021Q2

REPORT INFORMATION
  Report Type: Spontaneous
  Country: US (occurrence: US)
  Receive Date: 20210523
  Receipt Date: 20210523
  Transmission Date: 20210717
  Serious: No
  Sender: FDA-Public Use
  Company Number: US-ELI_LILLY_AND_COMPANY-US202105007879

PATIENT
  Age: 42 Year
  Sex: Male

DRUGS (2)
  1. HUMATROPE [Suspect]
     Active Substance: SOMATROPIN
     Indication: INSULIN-LIKE GROWTH FACTOR DECREASED
     Dosage: 0.6 MG, BID
     Route: 065
  2. HUMATROPE [Suspect]
     Active Substance: SOMATROPIN
     Dosage: 0.6 MG, BID
     Route: 065
     Dates: start: 202101

REACTIONS (3)
  - Off label use [Unknown]
  - Injection site pain [Not Recovered/Not Resolved]
  - Counterfeit product administered [Unknown]

NARRATIVE: CASE EVENT DATE: 202101
